FAERS Safety Report 4821347-0 (Version None)
Quarter: 2005Q4

REPORT INFORMATION
  Report Type: 
  Country: None (occurrence: None)
  Receive Date: 20051107
  Receipt Date: 20050920
  Transmission Date: 20060501
  Serious: No
  Sender: FDA-Public Use
  Company Number: US-GLAXOSMITHKLINE-A0575068A

PATIENT
  Age: 60 Year
  Sex: Female

DRUGS (6)
  1. AVANDAMET [Suspect]
     Dosage: 1TAB TWICE PER DAY
     Route: 048
     Dates: end: 20050401
  2. AVANDIA [Suspect]
     Dosage: 4MG TWICE PER DAY
     Route: 048
     Dates: start: 20050401
  3. GLUCOTROL [Suspect]
     Indication: DRUG USE FOR UNKNOWN INDICATION
     Route: 065
     Dates: end: 20050101
  4. METFORMIN HCL [Suspect]
     Dates: start: 20050401, end: 20050801
  5. FUROSEMIDE [Concomitant]
  6. ZETIA [Concomitant]

REACTIONS (3)
  - OEDEMA [None]
  - WEIGHT DECREASED [None]
  - WEIGHT INCREASED [None]
